FAERS Safety Report 10040976 (Version 1)
Quarter: 2014Q1

REPORT INFORMATION
  Report Type: Spontaneous
  Country: US (occurrence: US)
  Receive Date: 20140327
  Receipt Date: 20140327
  Transmission Date: 20141002
  Serious: No
  Sender: FDA-Public Use
  Company Number: US-PFIZER INC-2014087150

PATIENT
  Age: 75 Year
  Sex: Male

DRUGS (6)
  1. LOPID [Suspect]
     Dosage: UNK
  2. CORTISONE [Suspect]
     Dosage: UNK
  3. METFORMIN HCL [Suspect]
     Dosage: UNK
  4. NORCO [Suspect]
     Dosage: UNK
  5. KEFLEX [Suspect]
     Dosage: UNK
  6. SYMBICORT [Suspect]
     Dosage: UNK

REACTIONS (1)
  - Drug hypersensitivity [Unknown]
